FAERS Safety Report 18754170 (Version 2)
Quarter: 2021Q1

REPORT INFORMATION
  Report Type: Spontaneous
  Country: IT (occurrence: IT)
  Receive Date: 20210119
  Receipt Date: 20210121
  Transmission Date: 20210419
  Serious: Yes (Hospitalization, Other)
  Sender: FDA-Public Use
  Company Number: IT-TEVA-2021-IT-1869608

PATIENT
  Age: 7 Decade
  Sex: Female

DRUGS (4)
  1. CISPLATIN. [Suspect]
     Active Substance: CISPLATIN
     Indication: TONSIL CANCER
     Dosage: INFUSED AT A PERSONALIZED DOSAGE FOR ONLY ONE CYCLE
     Route: 065
     Dates: start: 2017
  2. PACLITAXEL. [Suspect]
     Active Substance: PACLITAXEL
     Indication: TONSIL CANCER
  3. PACLITAXEL. [Suspect]
     Active Substance: PACLITAXEL
     Indication: TONSIL CANCER
     Dosage: INFUSED AT A PERSONALIZED DOSAGE FOR ONLY ONE CYCLE
     Route: 065
     Dates: start: 2017
  4. CETUXIMAB. [Suspect]
     Active Substance: CETUXIMAB
     Indication: TONSIL CANCER
     Dosage: INFUSED AT A PERSONALIZED DOSAGE FOR ONLY ONE CYCLE
     Route: 065
     Dates: start: 2017

REACTIONS (2)
  - Pancytopenia [Recovered/Resolved]
  - Sepsis [Recovered/Resolved]
